FAERS Safety Report 5765912-5 (Version None)
Quarter: 2008Q2

REPORT INFORMATION
  Report Type: 
  Country: None (occurrence: None)
  Receive Date: 20080611
  Receipt Date: 20070605
  Transmission Date: 20081010
  Serious: No
  Sender: FDA-Public Use
  Company Number: US-BRISTOL-MYERS SQUIBB COMPANY-13805619

PATIENT
  Age: 67 Year
  Sex: Male

DRUGS (3)
  1. CARBIDOPA + LEVODOPA [Suspect]
     Indication: PARKINSONISM
     Route: 048
     Dates: start: 20040101
  2. LEXAPRO [Interacting]
     Indication: ANXIETY
     Route: 048
     Dates: start: 20031001, end: 20070501
  3. WELLBUTRIN [Concomitant]
     Indication: ANXIETY
     Dates: start: 20070501

REACTIONS (3)
  - AGITATION [None]
  - DRUG INTERACTION [None]
  - PARKINSONISM [None]
